FAERS Safety Report 21250606 (Version 2)
Quarter: 2022Q4

REPORT INFORMATION
  Report Type: Report from Study
  Country: AR (occurrence: AR)
  Receive Date: 20220824
  Receipt Date: 20221021
  Transmission Date: 20230112
  Serious: Yes (Other)
  Sender: FDA-Public Use
  Company Number: AR-ABBVIE-22K-007-4514976-00

PATIENT
  Age: 67 Year
  Sex: Female

DRUGS (1)
  1. HUMIRA [Suspect]
     Active Substance: ADALIMUMAB
     Indication: Ankylosing spondylitis
     Dosage: STRENGTH: 40 MG
     Route: 058
     Dates: start: 20191223

REACTIONS (3)
  - Breast neoplasm [Not Recovered/Not Resolved]
  - Memory impairment [Unknown]
  - Procedural pain [Unknown]

NARRATIVE: CASE EVENT DATE: 20220101
